FAERS Safety Report 7149118-3 (Version None)
Quarter: 2010Q4

REPORT INFORMATION
  Report Type: 
  Country: None (occurrence: None)
  Receive Date: 20101209
  Receipt Date: 20101130
  Transmission Date: 20110411
  Serious: Yes (Other)
  Sender: FDA-Public Use
  Company Number: US-BAXTER-2010BH029242

PATIENT

DRUGS (2)
  1. ALBUTEIN [Suspect]
     Indication: PROPHYLAXIS
     Route: 065
  2. DEXTROSE 5% AND SODIUM CHLORIDE 0.9% IN PLASTIC CONTAINER [Concomitant]
     Indication: PRODUCT USED FOR UNKNOWN INDICATION
     Route: 065

REACTIONS (1)
  - CARDIAC FAILURE CONGESTIVE [None]
